FAERS Safety Report 24732076 (Version 1)
Quarter: 2024Q4

REPORT INFORMATION
  Report Type: Spontaneous
  Country: US (occurrence: None)
  Receive Date: 20241213
  Receipt Date: 20241213
  Transmission Date: 20250115
  Serious: No
  Sender: Public
  Company Number: None

PATIENT
  Age: 49 Year
  Sex: Female
  Weight: 78 kg

DRUGS (1)
  1. CEFEPIME HYDROCHLORIDE [Suspect]
     Active Substance: CEFEPIME HYDROCHLORIDE
     Indication: Infection
     Dosage: OTHER FREQUENCY : ONCE;?
     Route: 042
     Dates: start: 20240829, end: 20240829

REACTIONS (6)
  - Dyspnoea [None]
  - Pruritus [None]
  - Throat tightness [None]
  - Urticaria [None]
  - Swollen tongue [None]
  - Escherichia test positive [None]

NARRATIVE: CASE EVENT DATE: 20240829
